FAERS Safety Report 4681395-0 (Version None)
Quarter: 2005Q2

REPORT INFORMATION
  Report Type: 
  Country: None (occurrence: None)
  Receive Date: 20050601
  Receipt Date: 20050512
  Transmission Date: 20051028
  Serious: Yes (Other)
  Sender: FDA-Public Use
  Company Number: USA050598007

PATIENT
  Age: 27 Year
  Sex: Female

DRUGS (4)
  1. CYMBALTA [Suspect]
     Dosage: 60 MG DAY
  2. PAXIL [Concomitant]
  3. ULTRAM [Concomitant]
  4. EXCEDRIN (MIGRAINE) [Concomitant]

REACTIONS (1)
  - CONVULSION [None]
